FAERS Safety Report 5830466-1 (Version None)
Quarter: 2008Q3

REPORT INFORMATION
  Report Type: 
  Country: None (occurrence: None)
  Receive Date: 20080801
  Receipt Date: 20070615
  Transmission Date: 20090109
  Serious: Yes (Hospitalization)
  Sender: FDA-Public Use
  Company Number: US-BRISTOL-MYERS SQUIBB COMPANY-13766688

PATIENT
  Sex: Male
  Weight: 92 kg

DRUGS (3)
  1. COUMADIN [Suspect]
     Indication: DEEP VEIN THROMBOSIS
     Dates: start: 20010401
  2. VIAGRA [Concomitant]
  3. HYTRIN [Concomitant]

REACTIONS (1)
  - EPISTAXIS [None]
